FAERS Safety Report 13514439 (Version 2)
Quarter: 2017Q2

REPORT INFORMATION
  Report Type: Spontaneous
  Country: FR (occurrence: FR)
  Receive Date: 20170504
  Receipt Date: 20170505
  Transmission Date: 20170830
  Serious: Yes (Other)
  Sender: FDA-Public Use
  Company Number: FR-009507513-1705FRA000616

PATIENT

DRUGS (1)
  1. PEMBROLIZUMAB. [Suspect]
     Active Substance: PEMBROLIZUMAB
     Indication: MALIGNANT MELANOMA
     Dosage: 2 MG/KG, EVERY THREE WEEKS
     Route: 042

REACTIONS (4)
  - Venous thrombosis [Recovering/Resolving]
  - Tenosynovitis [Recovering/Resolving]
  - Pancytopenia [Recovering/Resolving]
  - Toxicity to various agents [Recovering/Resolving]
